FAERS Safety Report 4807204-4 (Version None)
Quarter: 2005Q4

REPORT INFORMATION
  Report Type: 
  Country: None (occurrence: None)
  Receive Date: 20051024
  Receipt Date: 20051010
  Transmission Date: 20060501
  Serious: Yes (Disabling)
  Sender: FDA-Public Use
  Company Number: 200513447EU

PATIENT
  Age: 61 Year
  Sex: Male

DRUGS (11)
  1. NICORETTE [Suspect]
     Route: 062
     Dates: start: 20031101, end: 20040301
  2. SALBUTAMOL [Concomitant]
     Indication: ASTHMA
  3. LOPERAMIDE [Concomitant]
  4. OMEPRAZOLE [Concomitant]
     Indication: STOMACH DISCOMFORT
  5. ALLERGY MEDICATION [Concomitant]
     Indication: EYE ALLERGY
     Route: 047
  6. CEPHALEXIN [Concomitant]
     Indication: SINUSITIS
  7. PARACETAMOL DIHYDROCODEINE [Concomitant]
     Indication: HEADACHE
  8. FLUNISOLIDE [Concomitant]
     Indication: SINUSITIS
  9. VENTOLIN [Concomitant]
     Indication: ASTHMA
  10. VOLTAROL [Concomitant]
  11. HERBAL REMEDIES [Concomitant]

REACTIONS (9)
  - ARTHRITIS [None]
  - DIFFICULTY IN WALKING [None]
  - INSOMNIA [None]
  - MONOPLEGIA [None]
  - PAIN [None]
  - PAIN IN EXTREMITY [None]
  - PARAESTHESIA [None]
  - SHOULDER PAIN [None]
  - SKIN DISORDER [None]
